FAERS Safety Report 7013698-9 (Version None)
Quarter: 2010Q3

REPORT INFORMATION
  Report Type: 
  Country: None (occurrence: None)
  Receive Date: 20100924
  Receipt Date: 20100728
  Transmission Date: 20110219
  Serious: Yes (Other)
  Sender: FDA-Public Use
  Company Number: PHHY2010BR49696

PATIENT
  Sex: Female

DRUGS (3)
  1. GALVUS [Suspect]
     Indication: TYPE 2 DIABETES MELLITUS
     Dosage: 2 TABLETS, DAILY
     Route: 048
  2. DIOVAN HCT [Suspect]
     Indication: HYPERTENSION
     Dosage: 1 TABLET, DAILY
     Route: 048
  3. ATENOLOL [Concomitant]
     Indication: HYPERTENSION
     Dosage: 1 TABLET, DAILY
     Route: 048

REACTIONS (6)
  - EXCORIATION [None]
  - HEAD DISCOMFORT [None]
  - HEAD INJURY [None]
  - MEMORY IMPAIRMENT [None]
  - PAIN [None]
  - ROAD TRAFFIC ACCIDENT [None]
